FAERS Safety Report 19707926 (Version 3)
Quarter: 2022Q1

REPORT INFORMATION
  Report Type: Spontaneous
  Country: US (occurrence: US)
  Receive Date: 20210817
  Receipt Date: 20220217
  Transmission Date: 20220423
  Serious: Yes (Hospitalization)
  Sender: FDA-Public Use
  Company Number: ENDG21-05207

PATIENT
  Sex: Male
  Weight: 7.4 kg

DRUGS (4)
  1. BOSENTAN [Suspect]
     Active Substance: BOSENTAN
     Indication: Pulmonary hypertension
     Dosage: 6.25 MG, BID
     Route: 048
     Dates: start: 20210615, end: 2021
  2. BOSENTAN [Suspect]
     Active Substance: BOSENTAN
     Dosage: 12.5 MG, BID
     Dates: start: 2021, end: 2021
  3. BOSENTAN [Suspect]
     Active Substance: BOSENTAN
     Dosage: UNK UNKNOWN (DOSE DECREASED BY 10%), UNKNOWN FREQUENCY
     Dates: start: 2021, end: 2021
  4. BOSENTAN [Suspect]
     Active Substance: BOSENTAN
     Dosage: 12.5 MG, BID
     Dates: start: 2021

REACTIONS (3)
  - Respiratory tract infection [Unknown]
  - Alanine aminotransferase increased [Recovered/Resolved]
  - Off label use [Not Recovered/Not Resolved]

NARRATIVE: CASE EVENT DATE: 20210101
